FAERS Safety Report 5469969-0 (Version None)
Quarter: 2007Q3

REPORT INFORMATION
  Report Type: 
  Country: None (occurrence: None)
  Receive Date: 20070927
  Receipt Date: 20070920
  Transmission Date: 20080115
  Serious: Yes (Hospitalization)
  Sender: FDA-Public Use
  Company Number: US-ELI_LILLY_AND_COMPANY-US200709004265

PATIENT
  Age: 41 Year
  Sex: Male

DRUGS (4)
  1. HUMATROPE [Suspect]
     Dosage: UNK, UNKNOWN
  2. ERGOCALCIFEROL [Concomitant]
     Dosage: UNK, UNKNOWN
  3. TESTOSTERONE [Concomitant]
     Dosage: UNK, UNKNOWN
  4. SYNTHROID [Concomitant]
     Dosage: UNK, UNKNOWN

REACTIONS (1)
  - SARCOIDOSIS [None]
